FAERS Safety Report 10172151 (Version 1)
Quarter: 2014Q2

REPORT INFORMATION
  Report Type: Spontaneous
  Country: NL (occurrence: NL)
  Receive Date: 20140515
  Receipt Date: 20140515
  Transmission Date: 20141212
  Serious: Yes (Other)
  Sender: FDA-Public Use
  Company Number: PHHY2014NL057333

PATIENT
  Sex: Male

DRUGS (1)
  1. ENALAPRIL MALEATE SANDOZ [Suspect]

REACTIONS (5)
  - Weight increased [Unknown]
  - Vomiting [Unknown]
  - Diarrhoea [Unknown]
  - Fatigue [Unknown]
  - Malaise [Unknown]
